FAERS Safety Report 8036382-1 (Version None)
Quarter: 2012Q1

REPORT INFORMATION
  Report Type: 
  Country: None (occurrence: None)
  Receive Date: 20120111
  Receipt Date: 20120109
  Transmission Date: 20120608
  Serious: Yes (Death)
  Sender: FDA-Public Use
  Company Number: PHEH2011US00906

PATIENT
  Sex: Male

DRUGS (3)
  1. EXJADE [Suspect]
     Dosage: 2000 MG, QD
     Route: 048
  2. EXJADE [Suspect]
     Dosage: 2000 MG,
     Route: 048
     Dates: start: 20110804
  3. EXJADE [Suspect]
     Dosage: 500 MG, BID
     Route: 048

REACTIONS (4)
  - DEATH [None]
  - COUGH [None]
  - OEDEMA PERIPHERAL [None]
  - DIARRHOEA [None]
